FAERS Safety Report 7176380-3 (Version None)
Quarter: 2010Q4

REPORT INFORMATION
  Report Type: 
  Country: None (occurrence: None)
  Receive Date: 20101215
  Receipt Date: 20101215
  Transmission Date: 20110411
  Serious: Yes (Life-Threatening)
  Sender: FDA-Public Use
  Company Number: None

PATIENT
  Sex: Female
  Weight: 45.3 kg

DRUGS (2)
  1. LEVOFLOXACIN [Suspect]
     Indication: CELLULITIS
     Dosage: 250 MG DAILY PO
     Route: 048
     Dates: start: 20100908, end: 20100922
  2. LEVOFLOXACIN [Suspect]
     Indication: CELLULITIS
     Dosage: 500 MG DAILY PO
     Route: 048
     Dates: start: 20100922, end: 20100930

REACTIONS (9)
  - ACUTE MYOCARDIAL INFARCTION [None]
  - BRADYCARDIA [None]
  - CARDIAC ARREST [None]
  - CHILLS [None]
  - ELECTROCARDIOGRAM QT PROLONGED [None]
  - PYREXIA [None]
  - RESPIRATORY DEPRESSION [None]
  - SEPSIS SYNDROME [None]
  - TACHYCARDIA [None]
